FAERS Safety Report 6587608-2 (Version None)
Quarter: 2010Q1

REPORT INFORMATION
  Report Type: 
  Country: None (occurrence: None)
  Receive Date: 20100218
  Receipt Date: 20100104
  Transmission Date: 20100710
  Serious: Yes (Death)
  Sender: FDA-Public Use
  Company Number: JP-JNJFOC-20100101414

PATIENT
  Sex: Male

DRUGS (6)
  1. ITRIZOLE [Suspect]
     Indication: DRUG USE FOR UNKNOWN INDICATION
     Route: 041
  2. MAXIPIME [Concomitant]
     Route: 042
  3. GASDOCK [Concomitant]
     Route: 042
  4. GRAN [Concomitant]
     Route: 058
  5. FULCALIQ 2 [Concomitant]
     Route: 042
  6. MINERALIN [Concomitant]
     Route: 042

REACTIONS (3)
  - BLOOD PRESSURE DECREASED [None]
  - INFECTION [None]
  - NON-HODGKIN'S LYMPHOMA RECURRENT [None]
